FAERS Safety Report 4328867-6 (Version None)
Quarter: 2004Q2

REPORT INFORMATION
  Report Type: 
  Country: None (occurrence: None)
  Receive Date: 20040401
  Receipt Date: 20031218
  Transmission Date: 20050107
  Serious: Yes (Hospitalization, Other)
  Sender: FDA-Public Use
  Company Number: 200311535JP

PATIENT
  Age: 55 Year
  Sex: Male
  Weight: 50 kg

DRUGS (6)
  1. ARAVA [Suspect]
     Indication: RHEUMATOID ARTHRITIS
     Route: 048
     Dates: start: 20031106, end: 20040316
  2. PREDONINE [Suspect]
     Route: 048
     Dates: start: 20030806
  3. VOLTAREN [Suspect]
     Route: 048
     Dates: end: 20040301
  4. RHEUMATREX [Concomitant]
     Dosage: DOSE: 4MG/WEEK
     Route: 048
     Dates: start: 20030709, end: 20031105
  5. GASTER [Concomitant]
     Route: 048
  6. OSTELUC [Concomitant]
     Route: 048
     Dates: start: 20040303

REACTIONS (3)
  - GASTRIC ULCER PERFORATION [None]
  - INTERSTITIAL LUNG DISEASE [None]
  - SURGERY [None]
